FAERS Safety Report 18714809 (Version 1)
Quarter: 2021Q1

REPORT INFORMATION
  Report Type: Report from Study
  Country: None (occurrence: US)
  Receive Date: 20210108
  Receipt Date: 20210108
  Transmission Date: 20210419
  Serious: Yes (Other)
  Sender: FDA-Public Use
  Company Number: US-ABBVIE-20K-163-3702126-00

PATIENT
  Age: 66 Year
  Sex: Male
  Weight: 149.82 kg

DRUGS (2)
  1. HUMIRA [Suspect]
     Active Substance: ADALIMUMAB
     Dosage: CITRATE FREE
     Route: 058
     Dates: start: 20200909
  2. HUMIRA [Suspect]
     Active Substance: ADALIMUMAB
     Indication: PSORIASIS
     Dosage: CITRATE FREE
     Route: 058
     Dates: start: 2010, end: 20200826

REACTIONS (6)
  - Reproductive tract procedural complication [Recovering/Resolving]
  - Haematoma [Recovering/Resolving]
  - Pneumonia [Recovered/Resolved]
  - Inguinal hernia [Recovering/Resolving]
  - Cystocele [Recovering/Resolving]
  - Off label use [Recovering/Resolving]

NARRATIVE: CASE EVENT DATE: 20200227
